FAERS Safety Report 7617478-2 (Version None)
Quarter: 2011Q3

REPORT INFORMATION
  Report Type: 
  Country: None (occurrence: None)
  Receive Date: 20110718
  Receipt Date: 20110714
  Transmission Date: 20111222
  Serious: No
  Sender: FDA-Public Use
  Company Number: US-PFIZER INC-2011159710

PATIENT
  Sex: Female

DRUGS (1)
  1. LORATADINE AND PSEUDOEPHEDRINE SULFATE [Suspect]
     Indication: HYPERSENSITIVITY
     Dosage: 5/120 MG, 2X/DAY
     Route: 048
     Dates: start: 20110711

REACTIONS (2)
  - FATIGUE [None]
  - INSOMNIA [None]
